FAERS Safety Report 6054053-8 (Version None)
Quarter: 2009Q1

REPORT INFORMATION
  Report Type: 
  Country: None (occurrence: None)
  Receive Date: 20090123
  Receipt Date: 20090123
  Transmission Date: 20090719
  Serious: Yes (Life-Threatening)
  Sender: FDA-Public Use
  Company Number: None

PATIENT
  Age: 28 Year
  Sex: Female
  Weight: 77.1115 kg

DRUGS (3)
  1. LAMICTAL [Suspect]
     Indication: AFFECTIVE DISORDER
     Dosage: 25MG TWO WEEKS PO; 50MG-100MG WEEKS THREE-FIVE PO
     Route: 048
     Dates: start: 20081205, end: 20090106
  2. LAMICTAL [Suspect]
     Indication: ANXIETY
     Dosage: 25MG TWO WEEKS PO; 50MG-100MG WEEKS THREE-FIVE PO
     Route: 048
     Dates: start: 20081205, end: 20090106
  3. LAMICTAL [Suspect]
     Indication: MAJOR DEPRESSION
     Dosage: 25MG TWO WEEKS PO; 50MG-100MG WEEKS THREE-FIVE PO
     Route: 048
     Dates: start: 20081205, end: 20090106

REACTIONS (8)
  - DRY MOUTH [None]
  - DYSKINESIA [None]
  - DYSPHAGIA [None]
  - PANIC ATTACK [None]
  - PHARYNGEAL OEDEMA [None]
  - SALIVARY GLAND DISORDER [None]
  - THROAT TIGHTNESS [None]
  - TIC [None]
